FAERS Safety Report 6261782-X (Version None)
Quarter: 2009Q3

REPORT INFORMATION
  Report Type: 
  Country: None (occurrence: None)
  Receive Date: 20090709
  Receipt Date: 20090626
  Transmission Date: 20100115
  Serious: Yes (Hospitalization, Disabling, Other)
  Sender: FDA-Public Use
  Company Number: US-ELI_LILLY_AND_COMPANY-US200906006762

PATIENT
  Sex: Female

DRUGS (14)
  1. CYMBALTA [Suspect]
     Indication: DEPRESSION
     Dosage: 60 MG, 2/D
     Dates: start: 20060601
  2. VICODIN [Concomitant]
  3. CLONAZEPAM [Concomitant]
  4. COREG [Concomitant]
  5. MAXZIDE [Concomitant]
  6. POTASSIUM CHLORIDE [Concomitant]
  7. METFORMIN HCL [Concomitant]
  8. TRICOR [Concomitant]
  9. LYRICA [Concomitant]
  10. TRAZODONE HCL [Concomitant]
  11. FLUNISOLIDE [Concomitant]
  12. ATROVENT [Concomitant]
  13. ATARAX /SCH/ [Concomitant]
  14. PHENERGAN [Concomitant]

REACTIONS (12)
  - BACK INJURY [None]
  - DIPLOPIA [None]
  - DYSARTHRIA [None]
  - DYSSTASIA [None]
  - FALL [None]
  - HEAD INJURY [None]
  - HEADACHE [None]
  - MUSCULAR WEAKNESS [None]
  - POST CONCUSSION SYNDROME [None]
  - ROAD TRAFFIC ACCIDENT [None]
  - SPEECH DISORDER [None]
  - VISUAL IMPAIRMENT [None]
